FAERS Safety Report 11811511 (Version 1)
Quarter: 2015Q4

REPORT INFORMATION
  Report Type: Spontaneous
  Country: FR (occurrence: FR)
  Receive Date: 20151208
  Receipt Date: 20151208
  Transmission Date: 20160305
  Serious: Yes (Hospitalization)
  Sender: FDA-Public Use
  Company Number: FR-TEVA-615579ISR

PATIENT
  Age: 23 Year
  Sex: Female
  Weight: 54 kg

DRUGS (3)
  1. PARACETAMOL [Suspect]
     Active Substance: ACETAMINOPHEN
     Indication: TOXICITY TO VARIOUS AGENTS
     Dosage: 15 GRAM DAILY; 15 G = 50 TABLETS
     Route: 048
     Dates: start: 20151116, end: 20151116
  2. IBUPROFENE [Suspect]
     Active Substance: IBUPROFEN
     Indication: TOXICITY TO VARIOUS AGENTS
     Dosage: 20 DOSAGE FORMS DAILY;
     Route: 048
     Dates: start: 20151116, end: 20151116
  3. SPASFON [Suspect]
     Active Substance: PHLOROGLUCINOL
     Indication: TOXICITY TO VARIOUS AGENTS
     Dosage: 3 DOSAGE FORMS DAILY;
     Route: 048
     Dates: start: 20151116, end: 20151116

REACTIONS (3)
  - Toxicity to various agents [Recovered/Resolved]
  - Prothrombin time shortened [Recovered/Resolved]
  - Drug level increased [Recovered/Resolved]

NARRATIVE: CASE EVENT DATE: 20151116
